FAERS Safety Report 22060812 (Version 1)
Quarter: 2023Q1

REPORT INFORMATION
  Report Type: Spontaneous
  Country: CN (occurrence: CN)
  Receive Date: 20230303
  Receipt Date: 20230303
  Transmission Date: 20230417
  Serious: Yes (Hospitalization)
  Sender: FDA-Public Use
  Company Number: CN-MYLANLABS-2023M1021738

PATIENT
  Age: 91 Year
  Sex: Male
  Weight: 60 kg

DRUGS (2)
  1. LIPITOR [Suspect]
     Active Substance: ATORVASTATIN CALCIUM
     Indication: Lipids abnormal
     Dosage: 20 MILLIGRAM, TID
     Route: 045
     Dates: start: 20230207, end: 20230213
  2. LIPITOR [Suspect]
     Active Substance: ATORVASTATIN CALCIUM
     Indication: Coronary artery disease

REACTIONS (2)
  - Hepatic function abnormal [Recovering/Resolving]
  - Product use issue [Unknown]

NARRATIVE: CASE EVENT DATE: 20230207
